FAERS Safety Report 5474674-0 (Version None)
Quarter: 2007Q3

REPORT INFORMATION
  Report Type: 
  Country: None (occurrence: None)
  Receive Date: 20070928
  Receipt Date: 20070919
  Transmission Date: 20080115
  Serious: Yes (Other)
  Sender: FDA-Public Use
  Company Number: 2007AL003967

PATIENT
  Age: 59 Year
  Sex: Male

DRUGS (3)
  1. TRAMADOL HCL [Suspect]
     Indication: BACK PAIN
     Dosage: 300 MG, BID
  2. ETODOLAC [Concomitant]
  3. ACETYLSALICYLIC ACID [Concomitant]

REACTIONS (5)
  - DRUG WITHDRAWAL SYNDROME [None]
  - FREQUENT BOWEL MOVEMENTS [None]
  - HEADACHE [None]
  - INFLUENZA LIKE ILLNESS [None]
  - POLLAKIURIA [None]
